FAERS Safety Report 9028839 (Version 2)
Quarter: 2013Q1

REPORT INFORMATION
  Report Type: Spontaneous
  Country: US (occurrence: US)
  Receive Date: 20130124
  Receipt Date: 20130201
  Transmission Date: 20140127
  Serious: Yes (Death, Other)
  Sender: FDA-Public Use
  Company Number: US-009507513-1301USA011084

PATIENT
  Age: 68 Year
  Sex: Female

DRUGS (1)
  1. TEMODAR [Suspect]
     Indication: GLIOBLASTOMA
     Dosage: 125 MG, QD
     Route: 048
     Dates: start: 20121025, end: 20121205

REACTIONS (1)
  - Brain neoplasm malignant [Fatal]
